FAERS Safety Report 8105001-8 (Version None)
Quarter: 2012Q1

REPORT INFORMATION
  Report Type: 
  Country: None (occurrence: None)
  Receive Date: 20120201
  Receipt Date: 20111201
  Transmission Date: 20120608
  Serious: Yes (Other)
  Sender: FDA-Public Use
  Company Number: JP-GLAXOSMITHKLINE-B0767437A

PATIENT
  Sex: Female

DRUGS (3)
  1. PAXIL [Suspect]
     Route: 048
     Dates: start: 20080101
  2. PAXIL [Suspect]
     Indication: BIPOLAR DISORDER
     Route: 048
  3. PAXIL [Suspect]
     Route: 048
     Dates: start: 20070101

REACTIONS (2)
  - IMPULSIVE BEHAVIOUR [None]
  - MANIA [None]
